FAERS Safety Report 10039598 (Version 2)
Quarter: 2014Q1

REPORT INFORMATION
  Report Type: Spontaneous
  Country: US (occurrence: US)
  Receive Date: 20140326
  Receipt Date: 20140326
  Transmission Date: 20141002
  Serious: Yes (Other)
  Sender: FDA-Public Use
  Company Number: US-GE HEALTHCARE MEDICAL DIAGNOSTICS-OSCN-PR-1008S-0227

PATIENT
  Age: 51 Year
  Sex: Female

DRUGS (7)
  1. OMNISCAN [Suspect]
     Indication: PRODUCT USED FOR UNKNOWN INDICATION
     Route: 042
     Dates: start: 20060828, end: 20060828
  2. OMNISCAN [Suspect]
     Indication: HEPATIC LESION
     Route: 042
     Dates: start: 20070412, end: 20070412
  3. OMNISCAN [Suspect]
     Indication: CELLULITIS
     Route: 042
     Dates: start: 20070802, end: 20070802
  4. OMNISCAN [Suspect]
     Indication: MYOSITIS
     Route: 042
     Dates: start: 20070914, end: 20070914
  5. OPTIMARK [Suspect]
     Indication: HEPATITIS C
     Route: 042
     Dates: start: 20051219, end: 20051219
  6. OPTIMARK [Suspect]
     Indication: HEPATIC CIRRHOSIS
  7. MAGNEVIST [Suspect]
     Indication: HEPATIC LESION
     Route: 042
     Dates: start: 20060210, end: 20060210

REACTIONS (1)
  - Nephrogenic systemic fibrosis [Not Recovered/Not Resolved]
